FAERS Safety Report 25834275 (Version 1)
Quarter: 2025Q3

REPORT INFORMATION
  Report Type: Spontaneous
  Country: US (occurrence: US)
  Receive Date: 20250923
  Receipt Date: 20250923
  Transmission Date: 20251020
  Serious: No
  Sender: SANOFI AVENTIS
  Company Number: US-SA-2025SA279559

PATIENT
  Sex: Female

DRUGS (5)
  1. DUPIXENT [Suspect]
     Active Substance: DUPILUMAB
     Indication: Dermatitis atopic
     Dosage: 300 MG, QOW
     Route: 058
  2. ALENDRONATE [Concomitant]
     Active Substance: ALENDRONATE SODIUM
  3. IMODIUM A-D [Concomitant]
     Active Substance: LOPERAMIDE HYDROCHLORIDE
  4. SIMVASTATIN [Concomitant]
     Active Substance: SIMVASTATIN
  5. EYE HEALTH [Concomitant]
     Active Substance: AMINO ACIDS\BARLEY MALT

REACTIONS (5)
  - Visual impairment [Not Recovered/Not Resolved]
  - Insomnia [Not Recovered/Not Resolved]
  - Injection site pain [Not Recovered/Not Resolved]
  - Inappropriate schedule of product administration [Unknown]
  - Therapeutic response decreased [Unknown]
